FAERS Safety Report 13754368 (Version 1)
Quarter: 2017Q3

REPORT INFORMATION
  Report Type: Not Available
  Country: GB (occurrence: GB)
  Receive Date: 20170714
  Receipt Date: 20170714
  Transmission Date: 20171127
  Serious: Yes (Other)
  Sender: FDA-Public Use
  Company Number: GB-SYNTHON BV-NL01PV17_44216

PATIENT
  Age: 73 Year
  Sex: Male
  Weight: 70 kg

DRUGS (4)
  1. CLOBETASONE BUTYRATE [Concomitant]
     Active Substance: CLOBETASONE BUTYRATE
     Dosage: 1 DF, BID
     Dates: start: 20160816
  2. TAMSULOSIN [Suspect]
     Active Substance: TAMSULOSIN
     Dosage: UNK
     Dates: start: 20161213
  3. LAXIDO [Concomitant]
     Active Substance: POLYETHYLENE GLYCOL 3350\POTASSIUM CHLORIDE\SODIUM BICARBONATE\SODIUM CHLORIDE
     Dosage: 1 DF, QD
     Dates: start: 20161013
  4. OILATUM                            /01690401/ [Concomitant]
     Dosage: UNK, PRN
     Dates: start: 20161213

REACTIONS (3)
  - Loss of consciousness [Recovered/Resolved]
  - Orthostatic hypotension [Unknown]
  - Dizziness [Unknown]

NARRATIVE: CASE EVENT DATE: 20170416
